FAERS Safety Report 6958486-4 (Version None)
Quarter: 2010Q3

REPORT INFORMATION
  Report Type: 
  Country: None (occurrence: None)
  Receive Date: 20100831
  Receipt Date: 20100823
  Transmission Date: 20110219
  Serious: Yes (Death, Congenital Anomaly)
  Sender: FDA-Public Use
  Company Number: GXKR2010IN09473

PATIENT

DRUGS (8)
  1. CLONAZEPAM [Suspect]
     Dosage: 0.25 MG, (MATERNAL DOSE)
     Route: 064
  2. CLONAZEPAM [Suspect]
     Dosage: 0.5 MG, UNK
  3. CLONAZEPAM [Suspect]
     Dosage: 0.375 MG, UNK
  4. CLONAZEPAM [Suspect]
     Dosage: 0.25 MG, UNK
  5. LAMOTRIGIN BETA (NGX) [Suspect]
     Dosage: 150 MG, (MATERNAL DOSE)
     Route: 064
  6. LAMOTRIGIN BETA (NGX) [Suspect]
     Dosage: 175 MG, UNK
  7. LAMOTRIGIN BETA (NGX) [Suspect]
     Dosage: 250 MG, UNK
  8. FOLIC ACID [Concomitant]
     Dosage: 5 MG, (MATERNAL DOSE)
     Route: 064

REACTIONS (8)
  - ATRIAL SEPTAL DEFECT [None]
  - CONGENITAL CARDIOVASCULAR ANOMALY [None]
  - DRUG EXPOSURE DURING PREGNANCY [None]
  - HYDROPS FOETALIS [None]
  - POLYDACTYLY [None]
  - STILLBIRTH [None]
  - TRANSPOSITION OF THE GREAT VESSELS [None]
  - VENTRICULAR SEPTAL DEFECT [None]
